FAERS Safety Report 7289007-7 (Version None)
Quarter: 2011Q1

REPORT INFORMATION
  Report Type: 
  Country: None (occurrence: None)
  Receive Date: 20110201
  Receipt Date: 20110118
  Transmission Date: 20110831
  Serious: Yes (Hospitalization)
  Sender: FDA-Public Use
  Company Number: 2011000285

PATIENT
  Sex: Male

DRUGS (4)
  1. CARBOPLATIN [Suspect]
     Indication: PRODUCT USED FOR UNKNOWN INDICATION
  2. TARCEVA (ERLOTINIB) (TABLET) (ERLOTINIB) [Suspect]
     Indication: NON-SMALL CELL LUNG CANCER
     Dosage: MG, ORAL
     Route: 048
  3. AVASTIN [Suspect]
     Indication: NON-SMALL CELL LUNG CANCER
     Dates: end: 20101109
  4. TAXOL [Suspect]
     Indication: PRODUCT USED FOR UNKNOWN INDICATION

REACTIONS (13)
  - FAILURE TO THRIVE [None]
  - DYSPHAGIA [None]
  - COMPRESSION FRACTURE [None]
  - DISEASE PROGRESSION [None]
  - ASTHENIA [None]
  - VOCAL CORD PARALYSIS [None]
  - DEPRESSION [None]
  - DIZZINESS [None]
  - HYPOTENSION [None]
  - PNEUMONIA ASPIRATION [None]
  - MENTAL STATUS CHANGES [None]
  - DECREASED APPETITE [None]
  - DEHYDRATION [None]
